FAERS Safety Report 19490762 (Version 1)
Quarter: 2021Q3

REPORT INFORMATION
  Report Type: Spontaneous
  Country: US (occurrence: US)
  Receive Date: 20210705
  Receipt Date: 20210705
  Transmission Date: 20211014
  Serious: No
  Sender: FDA-Public Use
  Company Number: US-SA-2021SA217878

PATIENT

DRUGS (1)
  1. CLOLAR [Suspect]
     Active Substance: CLOFARABINE
     Dosage: DRUG STRUCTURE DOSAGE : UNKNOWN DRUG INTERVAL DOSAGE : UNKNOWN

REACTIONS (1)
  - Product preparation error [Unknown]
